FAERS Safety Report 17036063 (Version 1)
Quarter: 2019Q4

REPORT INFORMATION
  Report Type: Spontaneous
  Country: FR (occurrence: FR)
  Receive Date: 20191115
  Receipt Date: 20191115
  Transmission Date: 20200122
  Serious: Yes (Other)
  Sender: FDA-Public Use
  Company Number: NVSC2018FR000450

PATIENT

DRUGS (1)
  1. LUTATHERA [Suspect]
     Active Substance: LUTETIUM OXODOTREOTIDE LU-177
     Indication: PRODUCT USED FOR UNKNOWN INDICATION
     Dosage: UNK
     Route: 065

REACTIONS (10)
  - Sepsis [Unknown]
  - Lymphopenia [Unknown]
  - Hepatic failure [Unknown]
  - Malnutrition [Unknown]
  - Blood albumin decreased [Unknown]
  - General physical health deterioration [Unknown]
  - Liver abscess [Unknown]
  - Anaemia [Unknown]
  - Blood bilirubin increased [Unknown]
  - Neutropenia [Unknown]
